FAERS Safety Report 18915667 (Version 1)
Quarter: 2021Q1

REPORT INFORMATION
  Report Type: Spontaneous
  Country: US (occurrence: US)
  Receive Date: 20210219
  Receipt Date: 20210219
  Transmission Date: 20210420
  Serious: Yes (Hospitalization)
  Sender: FDA-Public Use
  Company Number: None

PATIENT
  Age: 47 Year
  Sex: Female
  Weight: 57.6 kg

DRUGS (2)
  1. LENALIDOMIDE (CC?5013) [Concomitant]
     Active Substance: LENALIDOMIDE
     Dates: end: 20210208
  2. DEXAMETHASONE. [Suspect]
     Active Substance: DEXAMETHASONE
     Dates: end: 20210209

REACTIONS (2)
  - Menopause [None]
  - Pregnancy test positive [None]

NARRATIVE: CASE EVENT DATE: 20210215
